FAERS Safety Report 20664833 (Version 1)
Quarter: 2022Q2

REPORT INFORMATION
  Report Type: Spontaneous
  Country: CA (occurrence: CA)
  Receive Date: 20220401
  Receipt Date: 20220401
  Transmission Date: 20220721
  Serious: Yes (Death, Other)
  Sender: FDA-Public Use
  Company Number: CA-TEVA-2022-CA-2022297

PATIENT
  Age: 78 Year
  Sex: Female

DRUGS (15)
  1. SILDENAFIL CITRATE [Suspect]
     Active Substance: SILDENAFIL CITRATE
     Indication: Pulmonary hypertension
     Dosage: 60 MILLIGRAM DAILY;
     Route: 048
  2. ALLOPURINOL [Concomitant]
     Active Substance: ALLOPURINOL
  3. ASPIRIN [Concomitant]
     Active Substance: ASPIRIN
     Route: 065
  4. ATORVASTATIN [Concomitant]
     Active Substance: ATORVASTATIN
     Route: 048
  5. CANDESARTAN [Concomitant]
     Active Substance: CANDESARTAN
  6. CLOPIDOGREL [Concomitant]
     Active Substance: CLOPIDOGREL BISULFATE
  7. FUROSEMIDE [Concomitant]
     Active Substance: FUROSEMIDE
     Route: 065
  8. GLICLAZIDE [Concomitant]
     Active Substance: GLICLAZIDE
  9. IRON [Concomitant]
     Active Substance: IRON
  10. LINAGLIPTIN [Concomitant]
     Active Substance: LINAGLIPTIN
  11. METOLAZONE [Concomitant]
     Active Substance: METOLAZONE
  12. OPSUMIT [Concomitant]
     Active Substance: MACITENTAN
  13. POTASSIUM [Concomitant]
     Active Substance: POTASSIUM
  14. RABEPRAZOLE [Concomitant]
     Active Substance: RABEPRAZOLE
  15. UPTRAVI [Concomitant]
     Active Substance: SELEXIPAG

REACTIONS (1)
  - Sudden death [Fatal]
